FAERS Safety Report 10165813 (Version 2)
Quarter: 2014Q2

REPORT INFORMATION
  Report Type: Spontaneous
  Country: US (occurrence: US)
  Receive Date: 20140510
  Receipt Date: 20140510
  Transmission Date: 20141212
  Serious: No
  Sender: FDA-Public Use
  Company Number: US-BRISTOL-MYERS SQUIBB COMPANY-19945609

PATIENT
  Age: 69 Year
  Sex: Male
  Weight: 84.8 kg

DRUGS (5)
  1. BYDUREON 2MG VIAL [Suspect]
     Indication: TYPE 2 DIABETES MELLITUS
     Dosage: EXP:JUN16; NDC#: 66780-226-01
  2. METFORMIN HCL [Suspect]
     Dosage: 1TAB IN MRNG?1 AND HALF TAB IN EVENING?1000MG 2/D
     Route: 048
  3. JANUVIA [Suspect]
     Route: 048
  4. ACTOS [Suspect]
     Route: 048
  5. LISINOPRIL [Concomitant]
     Route: 048

REACTIONS (6)
  - Incorrect dose administered [Unknown]
  - Product quality issue [Unknown]
  - Blood glucose increased [Unknown]
  - Injection site nodule [Not Recovered/Not Resolved]
  - Drug dose omission [Recovered/Resolved]
  - Asthenia [Unknown]
